FAERS Safety Report 7927898-4 (Version None)
Quarter: 2011Q4

REPORT INFORMATION
  Report Type: 
  Country: None (occurrence: None)
  Receive Date: 20111118
  Receipt Date: 20111110
  Transmission Date: 20120403
  Serious: Yes (Hospitalization)
  Sender: FDA-Public Use
  Company Number: US-JNJFOC-20111104803

PATIENT
  Sex: Female
  Weight: 64.86 kg

DRUGS (4)
  1. FERROUS SULFATE TAB [Concomitant]
     Indication: BLOOD IRON
     Route: 065
     Dates: start: 20110930
  2. PREDNISONE TAB [Concomitant]
     Indication: INFLAMMATION
     Route: 048
     Dates: start: 20110930
  3. IMURAN [Concomitant]
     Route: 065
  4. REMICADE [Suspect]
     Indication: CROHN'S DISEASE
     Route: 042
     Dates: start: 20111019

REACTIONS (4)
  - FATIGUE [None]
  - CROHN'S DISEASE [None]
  - HAEMOGLOBIN DECREASED [None]
  - ASTHENIA [None]
